FAERS Safety Report 17084458 (Version 3)
Quarter: 2020Q1

REPORT INFORMATION
  Report Type: Spontaneous
  Country: JP (occurrence: JP)
  Receive Date: 20191127
  Receipt Date: 20200203
  Transmission Date: 20200409
  Serious: No
  Sender: FDA-Public Use
  Company Number: JP-GLAXOSMITHKLINE-JP2019208656

PATIENT
  Age: 41 Year
  Sex: Male

DRUGS (4)
  1. ZAGALLO [Suspect]
     Active Substance: DUTASTERIDE
     Indication: ANDROGENETIC ALOPECIA
     Dosage: 0.5 MG, QD
     Route: 048
     Dates: start: 20190718, end: 20191120
  2. KETOCONAZOLE. [Concomitant]
     Active Substance: KETOCONAZOLE
     Indication: ECZEMA
     Dosage: UNK, PRN
     Route: 061
     Dates: start: 20190926
  3. FINASTERIDE. [Concomitant]
     Active Substance: FINASTERIDE
     Dosage: UNK
     Dates: start: 20191121
  4. FINASTERIDE. [Concomitant]
     Active Substance: FINASTERIDE
     Indication: ANDROGENETIC ALOPECIA
     Dosage: 1 MG, 1D
     Dates: start: 2010, end: 20190717

REACTIONS (1)
  - Alopecia [Unknown]

NARRATIVE: CASE EVENT DATE: 201910
